FAERS Safety Report 9894790 (Version 1)
Quarter: 2014Q1

REPORT INFORMATION
  Report Type: Spontaneous
  Country: TR (occurrence: TR)
  Receive Date: 20140213
  Receipt Date: 20140213
  Transmission Date: 20141002
  Serious: Yes (Death, Hospitalization)
  Sender: FDA-Public Use
  Company Number: PHHY2014TR016921

PATIENT
  Age: 62 Year
  Sex: Female

DRUGS (6)
  1. 5-FLUOROURACIL [Suspect]
     Indication: CHEMOTHERAPY
     Dosage: 600 MG/M2, UNK
  2. ANASTROZOLE [Suspect]
     Indication: CANCER HORMONAL THERAPY
  3. IDARUBICIN [Suspect]
     Indication: CHEMOTHERAPY
     Dosage: 12 MG/M2, PER DAY
  4. CYTARABINE [Suspect]
     Indication: CHEMOTHERAPY
     Dosage: 100 MG/M2, PER DAY
  5. DOXORUBICIN [Suspect]
     Dosage: 60 MG/M2, UNK
  6. CYCLOPHOSPHAMIDE [Suspect]
     Dosage: 600 MG/M2, UNK

REACTIONS (6)
  - Infection [Fatal]
  - Pyrexia [Fatal]
  - Acute myeloid leukaemia [Unknown]
  - Pancytopenia [Unknown]
  - Somnolence [Unknown]
  - Vaginal haemorrhage [Unknown]
